FAERS Safety Report 25821608 (Version 2)
Quarter: 2025Q4

REPORT INFORMATION
  Report Type: Spontaneous
  Country: US (occurrence: US)
  Receive Date: 20250919
  Receipt Date: 20251216
  Transmission Date: 20260119
  Serious: No
  Sender: RANBAXY
  Company Number: US-SUN PHARMACEUTICAL INDUSTRIES LTD-2025R1-523133

PATIENT
  Sex: Female

DRUGS (1)
  1. LISDEXAMFETAMINE [Suspect]
     Active Substance: LISDEXAMFETAMINE
     Indication: Attention deficit hyperactivity disorder
     Dosage: UNK UNK, QD
     Route: 065
     Dates: start: 2010

REACTIONS (4)
  - Recalled product administered [Unknown]
  - Disturbance in attention [Unknown]
  - Insomnia [Unknown]
  - Headache [Unknown]
